FAERS Safety Report 8252690-3 (Version None)
Quarter: 2012Q2

REPORT INFORMATION
  Report Type: 
  Country: None (occurrence: None)
  Receive Date: 20120402
  Receipt Date: 20110826
  Transmission Date: 20120825
  Serious: No
  Sender: FDA-Public Use
  Company Number: US-ABBOTT-11P-163-0849927-00

PATIENT
  Age: 65 Year
  Sex: Male
  Weight: 127.12 kg

DRUGS (5)
  1. UNKNOWN ACID BLOCKING MEDICATION [Concomitant]
     Indication: GASTROOESOPHAGEAL REFLUX DISEASE
  2. ANDROGEL [Suspect]
     Indication: ERECTILE DYSFUNCTION
  3. GLYPIZIDE [Concomitant]
     Indication: BLOOD GLUCOSE ABNORMAL
  4. ANDROGEL [Suspect]
     Indication: BLOOD TESTOSTERONE DECREASED
     Route: 061
     Dates: start: 20110822
  5. ANDROGEL [Suspect]
     Indication: MOOD ALTERED

REACTIONS (2)
  - INCORRECT STORAGE OF DRUG [None]
  - DRUG INEFFECTIVE [None]
